FAERS Safety Report 20189636 (Version 2)
Quarter: 2021Q4

REPORT INFORMATION
  Report Type: Spontaneous
  Country: US (occurrence: US)
  Receive Date: 20211215
  Receipt Date: 20211223
  Transmission Date: 20220303
  Serious: No
  Sender: FDA-Public Use
  Company Number: US-SANOFI-00889601

PATIENT
  Age: 7 Year
  Sex: Male

DRUGS (2)
  1. DUPIXENT [Suspect]
     Active Substance: DUPILUMAB
     Indication: Dermatitis atopic
     Dosage: UNK UNK, 1X
     Dates: start: 202010, end: 202010
  2. DUPIXENT [Suspect]
     Active Substance: DUPILUMAB
     Dosage: 300 MG, Q4W

REACTIONS (5)
  - Injection site pain [Unknown]
  - Product physical consistency issue [Unknown]
  - Product preparation error [Unknown]
  - Device issue [Unknown]
  - Product use issue [Unknown]

NARRATIVE: CASE EVENT DATE: 20211207
